FAERS Safety Report 8480968 (Version 2)
Quarter: 2013Q1

REPORT INFORMATION
  Report Type: Other
  Country: DK (occurrence: DK)
  Receive Date: 20120328
  Receipt Date: 20130329
  Transmission Date: 20140127
  Serious: Yes (Hospitalization)
  Sender: FDA-Public Use
  Company Number: DK-ARROW GEN-2012-04807

PATIENT
  Age: 34 Year
  Sex: Male

DRUGS (2)
  1. LAMOTRIGINE (UNKNOWN) [Suspect]
     Indication: DEPRESSION
     Dosage: UNK
     Route: 065
     Dates: start: 20120213, end: 20120305
  2. CYMBALTA [Concomitant]
     Indication: DEPRESSION
     Dosage: UNK
     Route: 065
     Dates: start: 20111110, end: 20120112

REACTIONS (5)
  - Rash [Unknown]
  - Pruritus [Unknown]
  - Lip swelling [Unknown]
  - Pharyngeal disorder [Unknown]
  - Hypersensitivity [Unknown]
